FAERS Safety Report 20901695 (Version 3)
Quarter: 2022Q3

REPORT INFORMATION
  Report Type: Spontaneous
  Country: JP (occurrence: JP)
  Receive Date: 20220601
  Receipt Date: 20220720
  Transmission Date: 20221027
  Serious: Yes (Hospitalization)
  Sender: FDA-Public Use
  Company Number: JP-ELI_LILLY_AND_COMPANY-JP202205011889

PATIENT
  Age: 76 Year
  Sex: Female
  Weight: 80 kg

DRUGS (7)
  1. VERZENIO [Suspect]
     Active Substance: ABEMACICLIB
     Indication: Hormone receptor positive HER2 negative breast cancer
     Dosage: 150 MG, BID
     Route: 048
     Dates: start: 20220324, end: 20220406
  2. FASLODEX [Concomitant]
     Active Substance: FULVESTRANT
     Indication: Hormone receptor positive HER2 negative breast cancer
     Dosage: 250 MG, CYCLICAL
     Route: 030
     Dates: start: 20210127, end: 20210421
  3. ZOLEDRONIC ACID [Concomitant]
     Active Substance: ZOLEDRONIC ACID
     Indication: Metastases to bone
     Dosage: 4 MG, DAILY
     Route: 041
     Dates: start: 20200109, end: 20220428
  4. AMLODIPINE\TELMISARTAN [Concomitant]
     Active Substance: AMLODIPINE\TELMISARTAN
     Indication: Hypertension
     Dosage: 1 DOSAGE FORM
     Route: 048
  5. ROSUVASTATIN CALCIUM [Concomitant]
     Active Substance: ROSUVASTATIN CALCIUM
     Indication: Hypercholesterolaemia
     Dosage: 2.5 MG, DAILY
     Route: 048
  6. DICLOFENAC SODIUM [Concomitant]
     Active Substance: DICLOFENAC SODIUM
     Indication: Back pain
     Dosage: 37.5 MG, DAILY
     Route: 048
  7. DIPHENIDOL HYDROCHLORIDE [Concomitant]
     Active Substance: DIPHENIDOL HYDROCHLORIDE
     Indication: Dizziness
     Dosage: 25 MG, TID
     Route: 048
     Dates: start: 20220106, end: 20220324

REACTIONS (5)
  - Glomerulonephritis rapidly progressive [Recovered/Resolved with Sequelae]
  - White blood cells urine positive [Unknown]
  - Nocturia [Unknown]
  - Dysuria [Unknown]
  - Diarrhoea [Unknown]

NARRATIVE: CASE EVENT DATE: 20220407
